FAERS Safety Report 8849440 (Version 1)
Quarter: 2012Q4

REPORT INFORMATION
  Report Type: 
  Country: US (occurrence: US)
  Receive Date: 20121019
  Receipt Date: 20121019
  Transmission Date: 20130627
  Serious: No
  Sender: FDA-Public Use
  Company Number: US-PFIZER INC-2012257241

PATIENT
  Age: 7 Year
  Sex: Male
  Weight: 19.5 kg

DRUGS (2)
  1. GENOTROPIN [Suspect]
     Indication: GROWTH HORMONE DEFICIENCY
     Dosage: UNK
     Dates: start: 20120909
  2. SODIUM BICARBONATE [Concomitant]
     Dosage: UNK

REACTIONS (1)
  - Rash [Unknown]
